FAERS Safety Report 8505454-7 (Version None)
Quarter: 2012Q3

REPORT INFORMATION
  Report Type: 
  Country: None (occurrence: None)
  Receive Date: 20120712
  Receipt Date: 20120628
  Transmission Date: 20120928
  Serious: Yes (Hospitalization, Other)
  Sender: FDA-Public Use
  Company Number: ES-ELI_LILLY_AND_COMPANY-ES201207000101

PATIENT
  Age: 54 Year
  Sex: Male

DRUGS (5)
  1. DEPAKENE [Concomitant]
     Indication: BIPOLAR DISORDER
     Dosage: UNK
     Dates: start: 20110930
  2. FENTANYL [Concomitant]
     Indication: PAIN
     Dosage: 12 UG, OTHER
     Route: 062
     Dates: start: 20111101
  3. ZYPREXA [Suspect]
     Dosage: 15 MG, UNK
  4. ALPRAZOLAM [Concomitant]
     Indication: BIPOLAR DISORDER
     Dosage: UNK
     Dates: start: 20010101
  5. ZYPREXA [Suspect]
     Indication: BIPOLAR DISORDER
     Dosage: 10 MG, QD
     Route: 048
     Dates: start: 20040101

REACTIONS (5)
  - TOXICITY TO VARIOUS AGENTS [None]
  - INSOMNIA [None]
  - DRUG INTERACTION [None]
  - RESPIRATORY FAILURE [None]
  - SOMNOLENCE [None]
